FAERS Safety Report 4550912-3 (Version None)
Quarter: 2004Q4

REPORT INFORMATION
  Report Type: 
  Country: None (occurrence: None)
  Receive Date: 20041217
  Receipt Date: 20040907
  Transmission Date: 20050328
  Serious: No
  Sender: FDA-Public Use
  Company Number: 2004-BP-07810BP(0)

PATIENT
  Age: 84 Year
  Sex: Female

DRUGS (6)
  1. SPIRIVA [Suspect]
     Indication: ASTHMA
     Dosage: 18 MCG (18 MCG), IH
     Route: 025
     Dates: start: 20040801
  2. COUMADIN [Concomitant]
  3. EVISTA [Concomitant]
  4. LESCOL [Concomitant]
  5. CARDIZEM [Concomitant]
  6. SINGULAIR [Concomitant]

REACTIONS (3)
  - COUGH [None]
  - DESQUAMATION MOUTH [None]
  - HOARSENESS [None]
